FAERS Safety Report 6026084-5 (Version None)
Quarter: 2008Q4

REPORT INFORMATION
  Report Type: 
  Country: None (occurrence: None)
  Receive Date: 20081230
  Receipt Date: 20081223
  Transmission Date: 20090506
  Serious: No
  Sender: FDA-Public Use
  Company Number: APP200801256

PATIENT
  Sex: Female

DRUGS (5)
  1. HEPARIN SODIUM INJECTION [Suspect]
     Indication: HAEMODIALYSIS
     Dosage: 5000 USP UNITS, PER CENTRAL LINE DUAL LUME
     Dates: start: 20081215, end: 20081215
  2. HEPARIN SODIUM INJECTION [Suspect]
     Indication: ANTICOAGULANT THERAPY
     Dosage: 300 USP UNITS, BOLUS 500 USP UNITS, HOURLY DURING 3 HR 30 MIN HEMODIALYSIS
     Route: 040
     Dates: start: 20081215, end: 20081215
  3. HEPARIN SODIUM INJECTION [Suspect]
     Indication: HAEMODIALYSIS
     Dosage: 300 USP UNITS, BOLUS 500 USP UNITS, HOURLY DURING 3 HR 30 MIN HEMODIALYSIS
     Route: 040
     Dates: start: 20081215, end: 20081215
  4. HEPARIN SODIUM INJECTION [Suspect]
     Indication: ANTICOAGULANT THERAPY
     Dosage: 300 USP UNITS, BOLUS 500 USP UNITS, HOURLY DURING 3 HR 30 MIN HEMODIALYSIS
     Route: 040
     Dates: start: 20081215, end: 20081215
  5. HEPARIN SODIUM INJECTION [Suspect]
     Indication: HAEMODIALYSIS
     Dosage: 300 USP UNITS, BOLUS 500 USP UNITS, HOURLY DURING 3 HR 30 MIN HEMODIALYSIS
     Route: 040
     Dates: start: 20081215, end: 20081215

REACTIONS (1)
  - CATHETER SITE HAEMORRHAGE [None]
